FAERS Safety Report 5274736-7 (Version None)
Quarter: 2007Q1

REPORT INFORMATION
  Report Type: 
  Country: None (occurrence: None)
  Receive Date: 20070320
  Receipt Date: 20070306
  Transmission Date: 20070707
  Serious: Yes (Other)
  Sender: FDA-Public Use
  Company Number: 2007-152923-NL

PATIENT
  Age: 25 Year
  Sex: Female
  Weight: 59 kg

DRUGS (2)
  1. NUVARING [Suspect]
     Indication: CONTRACEPTION
     Dosage: VAGINAL, 3 WKS IN, 1 WK OUT
     Route: 067
     Dates: start: 20030101
  2. IRON PILLS [Concomitant]

REACTIONS (2)
  - METRORRHAGIA [None]
  - PNEUMONIA [None]
